FAERS Safety Report 5271461-3 (Version None)
Quarter: 2007Q1

REPORT INFORMATION
  Report Type: 
  Country: None (occurrence: None)
  Receive Date: 20070321
  Receipt Date: 20070308
  Transmission Date: 20070707
  Serious: Yes (Death, Hospitalization, Other)
  Sender: FDA-Public Use
  Company Number: CA-SHR-CA-2007-008733

PATIENT
  Age: 41 Year
  Sex: Male

DRUGS (1)
  1. BETASERON [Suspect]
     Indication: MULTIPLE SCLEROSIS
     Dosage: 8 MIU, EVERY 2D
     Route: 058
     Dates: start: 20031001, end: 20060209

REACTIONS (6)
  - ASTHENIA [None]
  - DEATH [None]
  - EATING DISORDER [None]
  - MULTIPLE SCLEROSIS [None]
  - PNEUMONIA [None]
  - PYREXIA [None]
